FAERS Safety Report 7820162-3 (Version None)
Quarter: 2011Q4

REPORT INFORMATION
  Report Type: 
  Country: None (occurrence: None)
  Receive Date: 20111018
  Receipt Date: 20111011
  Transmission Date: 20120403
  Serious: Yes (Other)
  Sender: FDA-Public Use
  Company Number: PHHY2011BR91093

PATIENT
  Age: 18 Year
  Sex: Female

DRUGS (4)
  1. RISPERIDONE [Concomitant]
  2. OXCARBAZEPINE [Suspect]
     Indication: CONVULSION
     Dosage: 300 MG, BID
     Route: 048
  3. OXCARBAZEPINE [Suspect]
     Dosage: 300 MG, TID
     Route: 048
  4. MEPERIDINE HCL [Concomitant]

REACTIONS (2)
  - COMA [None]
  - CONVULSION [None]
